FAERS Safety Report 11054872 (Version 1)
Quarter: 2015Q2

REPORT INFORMATION
  Report Type: Spontaneous
  Country: GB (occurrence: GB)
  Receive Date: 20150422
  Receipt Date: 20150422
  Transmission Date: 20150821
  Serious: Yes (Other)
  Sender: FDA-Public Use
  Company Number: GB-JNJFOC-20150410306

PATIENT
  Age: 83 Year
  Sex: Male
  Weight: 79 kg

DRUGS (10)
  1. DILTIAZEM [Concomitant]
     Active Substance: DILTIAZEM
     Dosage: CUMULATIVE DOSE TO FIRST REACTION: 1276.0
     Route: 065
     Dates: start: 20130701
  2. FLUTICASONE [Concomitant]
     Active Substance: FLUTICASONE\FLUTICASONE PROPIONATE
     Dosage: CUMULATIVE DOSE TO FIRST REACTION: 87.8333333
     Route: 065
     Dates: start: 20150309, end: 20150319
  3. BECLOMETASONE [Concomitant]
     Active Substance: BECLOMETHASONE DIPROPIONATE
     Dosage: CUMULATIVE DOSE TO FIRST REACTION: 1180.0
     Route: 065
     Dates: start: 20140609
  4. HYLO-TEAR [Concomitant]
     Dosage: USE AS DIRECTED
     Route: 065
     Dates: start: 20150121
  5. SALBUTAMOL [Concomitant]
     Active Substance: ALBUTEROL
     Route: 065
     Dates: start: 20130701
  6. IBUPROFEN. [Suspect]
     Active Substance: IBUPROFEN
     Indication: PRODUCT USED FOR UNKNOWN INDICATION
     Route: 065
     Dates: start: 20150331
  7. TIOTROPIUM [Concomitant]
     Active Substance: TIOTROPIUM
     Dosage: CUMULATIVE DOSE TO FIRST REACTION: 21.9583333
     Route: 065
     Dates: start: 20150309
  8. SYMBICORT [Concomitant]
     Active Substance: BUDESONIDE\FORMOTEROL FUMARATE DIHYDRATE
     Dosage: CUMULATIVE DOSE TO FIRST REACTION: 594.0,??INHALED 1 PUFF TWICE A DAY
     Route: 055
     Dates: start: 20140607
  9. IBUPROFEN. [Suspect]
     Active Substance: IBUPROFEN
     Route: 065
  10. ASPIRIN. [Concomitant]
     Active Substance: ASPIRIN
     Dosage: CUMULATIVE DOSE TO FIRST REACTION: 574.0
     Route: 065
     Dates: start: 20130903

REACTIONS (1)
  - Wheezing [Recovered/Resolved]

NARRATIVE: CASE EVENT DATE: 20150331
